FAERS Safety Report 5473549-0 (Version None)
Quarter: 2007Q4

REPORT INFORMATION
  Report Type: 
  Country: None (occurrence: None)
  Receive Date: 20071001
  Receipt Date: 20070504
  Transmission Date: 20080405
  Serious: No
  Sender: FDA-Public Use
  Company Number: US-ASTRAZENECA-2007UW09564

PATIENT
  Sex: Female

DRUGS (1)
  1. ARIMIDEX [Suspect]

REACTIONS (6)
  - ARTHRALGIA [None]
  - BONE PAIN [None]
  - BURNING SENSATION [None]
  - GAIT DISTURBANCE [None]
  - HYPOAESTHESIA [None]
  - PARAESTHESIA [None]
